FAERS Safety Report 8786498 (Version 1)
Quarter: 2012Q4

REPORT INFORMATION
  Report Type: Spontaneous
  Country: FR (occurrence: None)
  Receive Date: 20120905
  Receipt Date: 20120905
  Transmission Date: 20130627
  Serious: Yes (Hospitalization)
  Sender: FDA-Public Use
  Company Number: 1391542

PATIENT
  Age: 47 Year
  Sex: Male

DRUGS (6)
  1. VINCRISTINE SULFATE [Suspect]
     Indication: CHEMOTHERAPY
     Route: 042
     Dates: start: 20120608
  2. DOXORUBICIN [Suspect]
     Indication: CHEMOTHERAPY
     Route: 042
     Dates: start: 20120611
  3. ENDOXAN [Suspect]
     Indication: CHEMOTHERAPY
     Route: 042
     Dates: start: 20120608
  4. MABTHERA [Suspect]
     Indication: CHEMOTHERAPY
     Route: 042
     Dates: start: 20120611
  5. SOLUPRED [Suspect]
     Indication: DRUG USE FOR UNKNOWN INDICATION
     Route: 048
     Dates: start: 20120608
  6. INEXIUM [Suspect]
     Indication: DRUG USE FOR UNKNOWN INDICATION
     Route: 048

REACTIONS (2)
  - Congestive cardiomyopathy [None]
  - Systolic dysfunction [None]
